FAERS Safety Report 8799089 (Version 1)
Quarter: 2012Q4

REPORT INFORMATION
  Report Type: 
  Country: US (occurrence: US)
  Receive Date: 20120920
  Receipt Date: 20120920
  Transmission Date: 20130627
  Serious: Yes (Other)
  Sender: FDA-Public Use
  Company Number: US-ALLERGAN-1212805US

PATIENT
  Age: 84 Year
  Sex: Male

DRUGS (2)
  1. COMBIGAN [Suspect]
     Indication: GLAUCOMA
     Dosage: 2 Gtt, bid
     Route: 047
     Dates: end: 201201
  2. LATANOPROST [Concomitant]
     Indication: GLAUCOMA
     Dosage: 2 Gtt, qd
     Route: 047

REACTIONS (2)
  - Hallucination [Recovered/Resolved]
  - Fatigue [Unknown]
